FAERS Safety Report 6193064-9 (Version None)
Quarter: 2009Q2

REPORT INFORMATION
  Report Type: 
  Country: None (occurrence: None)
  Receive Date: 20090518
  Receipt Date: 20090514
  Transmission Date: 20091009
  Serious: Yes (Life-Threatening)
  Sender: FDA-Public Use
  Company Number: IT-ASTRAZENECA-2009SE01782

PATIENT
  Age: 18326 Day
  Sex: Female

DRUGS (3)
  1. DIPRIVAN [Suspect]
     Indication: GENERAL ANAESTHESIA
     Route: 042
     Dates: start: 20090508, end: 20090508
  2. FENTANEST [Suspect]
     Indication: GENERAL ANAESTHESIA
     Route: 042
     Dates: start: 20090508, end: 20090508
  3. NIMBEX [Suspect]
     Indication: GENERAL ANAESTHESIA
     Route: 042
     Dates: start: 20090508, end: 20090508

REACTIONS (2)
  - BRONCHOSPASM [None]
  - LARYNGEAL OEDEMA [None]
